FAERS Safety Report 15651124 (Version 5)
Quarter: 2022Q2

REPORT INFORMATION
  Report Type: Spontaneous
  Country: US (occurrence: US)
  Receive Date: 20181123
  Receipt Date: 20220504
  Transmission Date: 20220721
  Serious: No
  Sender: FDA-Public Use
  Company Number: US-PFIZER INC-2015165650

PATIENT
  Age: 74 Year
  Sex: Male

DRUGS (36)
  1. LYRICA [Suspect]
     Active Substance: PREGABALIN
     Indication: Neuropathy peripheral
     Dosage: 150 MG, 3X/DAY (TAKE 1 CAPSULE(S) 3 TIMES A DAY)
     Route: 048
  2. LYRICA [Suspect]
     Active Substance: PREGABALIN
     Indication: Polyneuropathy
  3. LYRICA [Suspect]
     Active Substance: PREGABALIN
     Indication: Electric shock sensation
  4. ASPIRIN [Concomitant]
     Active Substance: ASPIRIN
     Dosage: 81 MG, DAILY, (1 TABLET(S) EVERY DAY BY ORAL ROUTE AS DIRECTED FOR 90 DAYS)
     Route: 048
  5. ATENOLOL [Concomitant]
     Active Substance: ATENOLOL
     Dosage: 25 MG, DAILY, (TAKE 1 TABLET{S) EVERY DAY BY ORAL ROUTE IN THE EVENING FOR 90 DAYS)
     Route: 048
  6. BENADRYL [Concomitant]
     Active Substance: DIPHENHYDRAMINE HYDROCHLORIDE
     Dosage: UNK
  7. Cal 600 + D(3) [Concomitant]
     Dosage: 1 DF, 2X/DAY, (ONE BY MOUTH TWICE DAILY)
     Route: 048
  8. Cal 600 + D(3) [Concomitant]
     Dosage: UNK, DAILY
  9. FLOMAX [Concomitant]
     Active Substance: TAMSULOSIN HYDROCHLORIDE
     Dosage: 0.8 MG, DAILY, (2 CAPSULES BY MOUTH DAILY AT BEDTIME)
  10. FORTEN [Concomitant]
     Dosage: UNK
  11. HYDROCODONE [Concomitant]
     Active Substance: HYDROCODONE
     Dosage: UNK
  12. LIPITOR [Concomitant]
     Active Substance: ATORVASTATIN CALCIUM
     Dosage: UNK
  13. LOSARTAN [Concomitant]
     Active Substance: LOSARTAN
     Dosage: 25 MG, DAILY, (TAKE 1 TABLET(S) EVERY DAY BY ORAL ROUTE IN THE MORNING FOR 90 DAYS)
     Route: 048
  14. LOSARTAN [Concomitant]
     Active Substance: LOSARTAN
     Dosage: 50 MG, DAILY, (TAKE 1 TABLET EVERY DAY BY ORAL ROUTE AS DIRECTED FOR 90 DAYS)
     Route: 048
  15. MAGNESIUM OXIDE [Concomitant]
     Active Substance: MAGNESIUM OXIDE
     Dosage: 400 MG, DAILY, (TAKE 1 TABLET(S) EVERY DAY BY ORAL ROUTE IN THE MORNING FOR 90 DAYS)
     Route: 048
  16. MIRALAX [Concomitant]
     Active Substance: POLYETHYLENE GLYCOL 3350
     Dosage: 17 MG, AS NEEDED (ONE PACKET BY MOUTH EVERY DAY AS NEEDED)
     Route: 048
  17. PRIMIDONE [Concomitant]
     Active Substance: PRIMIDONE
     Indication: Essential tremor
     Dosage: 250 MG, 3X/DAY, (1 TABLET(S) 3 TIMES A DAY BY ORAL ROUTE FOR 90 DAYS)
     Route: 048
  18. PROAIR HFA [Concomitant]
     Active Substance: ALBUTEROL SULFATE
     Indication: Dyspnoea
     Dosage: UNK UNK, 4X/DAY, (2 PUFFS BY INHALATION EVERY 6 HOURS AS NEEDED)
  19. VITAMIN D3 [Concomitant]
     Active Substance: CHOLECALCIFEROL
     Dosage: 1000 IU, 2X/DAY, (1 TABLETS (S) TWICE A DAY BY ORAL ROUTE AS DIRECTED FOR 90 DAYS)
     Route: 048
  20. PROBIOTICS NOS [Concomitant]
     Active Substance: PROBIOTICS NOS
     Dosage: 1 DF, DAILY
     Route: 048
  21. ATORVASTATIN [Concomitant]
     Active Substance: ATORVASTATIN
     Dosage: 10 MG, DAILY, (ONE TABLET BY MOUTH DAILY AT BEDTIME)
     Route: 048
  22. CLARITIN [Concomitant]
     Active Substance: LORATADINE
     Dosage: 10 MG, AS NEEDED (1 TABLET(S) EVERY DAY BY ORAL ROUTE AS NEEDED)
     Route: 048
  23. FLONASE ALLERGY RELIEF [Concomitant]
     Active Substance: FLUTICASONE PROPIONATE
     Dosage: UNK UNK, 2X/DAY, (60 MCG/ACTUATION , (INHALE 1 SPRAY(S) TWICE A DAY)
     Route: 045
  24. ACETAMINOPHEN\HYDROCODONE [Concomitant]
     Active Substance: ACETAMINOPHEN\HYDROCODONE
     Dosage: 1 DF, AS NEEDED, (ONE TABLET BY MOUTH EVERY 6 HOURS)
     Route: 048
  25. LORATADINE [Concomitant]
     Active Substance: LORATADINE
     Dosage: UNK, AS NEEDED  (DAILY AS NEEDED)
  26. OCUVITE [Concomitant]
     Active Substance: VITAMINS
     Dosage: 1 DF, DAILY (150 MG- 30 UNIT- 5 MG- 150 MG) (TAKE 1 CAPSULE(S) EVERY)
     Route: 048
  27. LACTOBACILLUS ACIDOPHILUS [Concomitant]
     Active Substance: LACTOBACILLUS ACIDOPHILUS
     Dosage: 1 DF, DAILY, (ONE PILL BY MOUTH DAILY)
     Route: 048
  28. PROSCAR [Concomitant]
     Active Substance: FINASTERIDE
     Dosage: 5 MG, DAILY, (ONE TABLET DAILY)
     Route: 048
  29. STOOL SOFTENER (DOCUSATE) [Concomitant]
     Active Substance: DOCUSATE
     Dosage: UNK, 1X/DAY
  30. STOOL SOFTENER (DOCUSATE) [Concomitant]
     Active Substance: DOCUSATE
     Dosage: UNK, AS NEEDED
  31. TAMSULOSIN [Concomitant]
     Active Substance: TAMSULOSIN
     Dosage: 0.8 MG, DAILY (2 CAPSULE DAILY AT BEDTIME)
     Route: 048
  32. TIMOLOL MALEATE [Concomitant]
     Active Substance: TIMOLOL MALEATE
     Dosage: 0.6 %, DAILY, (1 DROP (S) EVERYDAY)
     Route: 047
  33. ANORO ELLIPTA [Concomitant]
     Active Substance: UMECLIDINIUM BROMIDE\VILANTEROL TRIFENATATE
     Dosage: UNK UNK, DAILY, (62.5 MCG-25 MCG/ACTUATION, INHALE 1 PUFF EVERY DAY BY INHALATION ROUTE FOR 90 DAYS)
     Route: 055
  34. FINASTERIDE [Concomitant]
     Active Substance: FINASTERIDE
     Dosage: 5 MG, DAILY, (1 TABLET EVERY DAY)
     Route: 048
  35. MELATONIN [Concomitant]
     Active Substance: MELATONIN
     Indication: Insomnia
     Dosage: 5 MG, AS NEEDED
  36. METOPROLOL SUCCINATE [Concomitant]
     Active Substance: METOPROLOL SUCCINATE
     Dosage: 25 MG, DAILY, (1 TABLET EVERY DAY BY ORAL ROUTE FOR 30 DAYS)
     Route: 048

REACTIONS (4)
  - Tremor [Unknown]
  - Pain in extremity [Unknown]
  - Malaise [Unknown]
  - Speech disorder [Unknown]
